FAERS Safety Report 11525349 (Version 3)
Quarter: 2016Q2

REPORT INFORMATION
  Report Type: Spontaneous
  Country: US (occurrence: US)
  Receive Date: 20150918
  Receipt Date: 20160518
  Transmission Date: 20160815
  Serious: Yes (Hospitalization, Other)
  Sender: FDA-Public Use
  Company Number: US-MDT-ADR-2015-01815

PATIENT
  Age: 58 Year
  Sex: Female

DRUGS (14)
  1. LEVOTHYROXINE. [Suspect]
     Active Substance: LEVOTHYROXINE
     Route: 065
  2. XANAX [Suspect]
     Active Substance: ALPRAZOLAM
     Route: 065
  3. IBUPROFEN. [Suspect]
     Active Substance: IBUPROFEN
     Route: 065
  4. ATENOLOL. [Suspect]
     Active Substance: ATENOLOL
     Route: 065
  5. FENTANYL. [Suspect]
     Active Substance: FENTANYL
     Route: 037
  6. SERTRALINE [Suspect]
     Active Substance: SERTRALINE HYDROCHLORIDE
     Route: 065
  7. MIRTAZAPINE. [Suspect]
     Active Substance: MIRTAZAPINE
     Route: 065
  8. VITAMIN D [Suspect]
     Active Substance: CHOLECALCIFEROL
     Route: 065
  9. SEASONIQUE [Suspect]
     Active Substance: ETHINYL ESTRADIOL\LEVONORGESTREL
  10. CLONIDINE. [Suspect]
     Active Substance: CLONIDINE
     Route: 037
  11. FENTANYL TRANSDERMAL SYSTEM [Suspect]
     Active Substance: FENTANYL
     Dosage: ORAL OR TRANSDERMAL
  12. COMPOUNDED BACLOFEN INTRATHECAL [Suspect]
     Active Substance: BACLOFEN
     Route: 037
  13. QUETIAPINE. [Suspect]
     Active Substance: QUETIAPINE
     Route: 065
  14. LEVETIRACETAM. [Suspect]
     Active Substance: LEVETIRACETAM
     Route: 065

REACTIONS (1)
  - Overdose [Recovered/Resolved]

NARRATIVE: CASE EVENT DATE: 20150912
